FAERS Safety Report 8327165-3 (Version None)
Quarter: 2012Q2

REPORT INFORMATION
  Report Type: 
  Country: None (occurrence: None)
  Receive Date: 20120501
  Receipt Date: 20120418
  Transmission Date: 20120825
  Serious: Yes (Hospitalization)
  Sender: FDA-Public Use
  Company Number: JP-BAXTER-2012BH004530

PATIENT
  Sex: Male

DRUGS (6)
  1. FEIBA [Suspect]
     Route: 065
  2. FIBROGAMMIN P [Concomitant]
     Route: 065
  3. TRANSAMIN INJECTION [Concomitant]
     Route: 065
  4. NOVOSEVEN [Concomitant]
     Route: 065
  5. FEIBA [Suspect]
     Route: 065
  6. TRANSAMIN CAPSULE [Concomitant]
     Route: 065

REACTIONS (3)
  - HAEMARTHROSIS [None]
  - HAEMORRHAGE [None]
  - POST PROCEDURAL HAEMORRHAGE [None]
